FAERS Safety Report 5576568-9 (Version None)
Quarter: 2007Q4

REPORT INFORMATION
  Report Type: 
  Country: None (occurrence: None)
  Receive Date: 20071228
  Receipt Date: 20070921
  Transmission Date: 20080405
  Serious: No
  Sender: FDA-Public Use
  Company Number: A0683552A

PATIENT
  Age: 87 Year
  Sex: Male

DRUGS (5)
  1. FLOVENT [Suspect]
     Indication: CHRONIC OBSTRUCTIVE PULMONARY DISEASE
     Dosage: 2PUFF TWICE PER DAY
     Route: 055
  2. DUONEB [Concomitant]
  3. FLOMAX [Concomitant]
  4. NEXIUM [Concomitant]
  5. UNKNOWN MEDICATION [Concomitant]

REACTIONS (2)
  - DYSPNOEA [None]
  - PHARMACEUTICAL PRODUCT COMPLAINT [None]
